FAERS Safety Report 5800414-9 (Version None)
Quarter: 2008Q3

REPORT INFORMATION
  Report Type: 
  Country: None (occurrence: None)
  Receive Date: 20080703
  Receipt Date: 20080624
  Transmission Date: 20090109
  Serious: Yes (Hospitalization)
  Sender: FDA-Public Use
  Company Number: FR-ROCHE-572772

PATIENT
  Sex: Male

DRUGS (6)
  1. ROCEPHIN [Suspect]
     Indication: DRUG USE FOR UNKNOWN INDICATION
     Dosage: FORMULATION: INJECTABLE SOLUTION.
     Route: 058
     Dates: start: 20080106
  2. PREVISCAN [Interacting]
     Indication: ATRIAL FIBRILLATION
     Route: 048
     Dates: end: 20080108
  3. PREVISCAN [Interacting]
     Dosage: DOSAGE LOWERED.
     Route: 048
     Dates: start: 20080110
  4. PREVISCAN [Interacting]
     Dosage: DOSAGE INCREASED.
     Route: 048
     Dates: start: 20080115
  5. TRIFLUCAN [Interacting]
     Indication: DRUG USE FOR UNKNOWN INDICATION
     Dosage: DOSAGE REGIMEN: 1 DOSE QD.
     Route: 048
     Dates: start: 20080122, end: 20080125
  6. CIFLOX [Interacting]
     Indication: DRUG USE FOR UNKNOWN INDICATION
     Route: 048
     Dates: start: 20080106, end: 20080124

REACTIONS (2)
  - DRUG INTERACTION [None]
  - INTERNATIONAL NORMALISED RATIO INCREASED [None]
